FAERS Safety Report 16901541 (Version 2)
Quarter: 2019Q4

REPORT INFORMATION
  Report Type: Spontaneous
  Country: DE (occurrence: DE)
  Receive Date: 20191010
  Receipt Date: 20191108
  Transmission Date: 20200122
  Serious: Yes (Hospitalization)
  Sender: FDA-Public Use
  Company Number: DE-ABBVIE-19P-062-2956958-00

PATIENT
  Age: 8 Year
  Sex: Male
  Weight: 22 kg

DRUGS (4)
  1. URSOFALK [Concomitant]
     Active Substance: URSODIOL
     Indication: BLOOD CHOLESTEROL
     Dosage: DAILY DOSE: 750 MG MILLGRAM(S) EVERY DAYS 3 SEPARATED DOSES
     Route: 048
  2. KREON [Suspect]
     Active Substance: PANCRELIPASE
     Indication: PRODUCT USED FOR UNKNOWN INDICATION
     Dosage: 2.000 IE/G FETT ()
     Route: 048
     Dates: end: 20190304
  3. PULMOZYME [Concomitant]
     Active Substance: DORNASE ALFA
     Indication: CYSTIC FIBROSIS
     Dosage: 2.500 E/ML  1X1 ()
     Route: 055
  4. VITAMIN D NOS [Concomitant]
     Active Substance: VITAMIN D NOS
     Indication: PRODUCT USED FOR UNKNOWN INDICATION
     Dosage: DAILY DOSE: 2 IU INTERNATIONAL UNIT(S) EVERY 2 DAYS 2 SEPARATED DOSES

REACTIONS (2)
  - Polydipsia [Recovering/Resolving]
  - Polyuria [Recovering/Resolving]
